FAERS Safety Report 24648090 (Version 1)
Quarter: 2024Q4

REPORT INFORMATION
  Report Type: Report from Study
  Country: CA (occurrence: CA)
  Receive Date: 20241121
  Receipt Date: 20241121
  Transmission Date: 20250114
  Serious: Yes (Other)
  Sender: GLAXOSMITHKLINE
  Company Number: CA-GLAXOSMITHKLINE INC-CA2022AMR133156

PATIENT

DRUGS (8)
  1. BELIMUMAB [Suspect]
     Active Substance: BELIMUMAB
     Indication: Systemic lupus erythematosus
     Dosage: 10 MG/KG, Q4W
     Route: 042
     Dates: start: 20210803
  2. BELIMUMAB [Suspect]
     Active Substance: BELIMUMAB
     Dosage: 10 MG/KG, Q4W
     Route: 042
  3. BELIMUMAB [Suspect]
     Active Substance: BELIMUMAB
     Dosage: 10 MG/KG, Q4W
     Route: 042
  4. BELIMUMAB [Suspect]
     Active Substance: BELIMUMAB
     Dosage: 10 MG/KG, Q4W
     Route: 042
  5. BELIMUMAB [Suspect]
     Active Substance: BELIMUMAB
     Dosage: UNK
  6. BELIMUMAB [Suspect]
     Active Substance: BELIMUMAB
     Dosage: UNK
  7. BELIMUMAB [Suspect]
     Active Substance: BELIMUMAB
     Dosage: 840 MG
     Route: 042
  8. HYDROXYCHLOROQUINE [Concomitant]
     Active Substance: HYDROXYCHLOROQUINE
     Indication: Product used for unknown indication
     Dosage: 400 MG

REACTIONS (7)
  - Ophthalmic herpes zoster [Recovered/Resolved]
  - Weight decreased [Unknown]
  - Arthritis [Not Recovered/Not Resolved]
  - Eye infection [Unknown]
  - Rash [Recovering/Resolving]
  - Incorrect dose administered [Unknown]
  - Inappropriate schedule of product administration [Unknown]

NARRATIVE: CASE EVENT DATE: 20240517
